FAERS Safety Report 7702097-X (Version None)
Quarter: 2011Q3

REPORT INFORMATION
  Report Type: 
  Country: None (occurrence: None)
  Receive Date: 20110822
  Receipt Date: 20110817
  Transmission Date: 20111222
  Serious: Yes (Other)
  Sender: FDA-Public Use
  Company Number: US-ABBOTT-11P-163-0841229-00

PATIENT
  Sex: Female
  Weight: 75.364 kg

DRUGS (18)
  1. HUMIRA [Suspect]
     Dates: start: 20100101, end: 20110501
  2. ZANAFLEX [Concomitant]
     Indication: SPINAL CORD INJURY
  3. ZANAFLEX [Concomitant]
     Indication: SYRINGOMYELIA
  4. VITAMIN TAB [Concomitant]
     Indication: VITAMIN SUPPLEMENTATION
  5. HUMIRA [Suspect]
     Dates: start: 20110722
  6. LORTAB [Concomitant]
     Indication: PAIN
  7. LOVASTATIN [Concomitant]
     Indication: BLOOD CHOLESTEROL INCREASED
  8. TOPAMAX [Concomitant]
     Indication: HEADACHE
  9. UNNAMED HORMONE [Concomitant]
     Indication: PRODUCT USED FOR UNKNOWN INDICATION
  10. SOMA [Concomitant]
     Indication: MUSCLE SPASMS
  11. TOPAMAX [Concomitant]
     Indication: TRIGEMINAL NEURALGIA
  12. HUMIRA [Suspect]
     Indication: PSORIATIC ARTHROPATHY
     Dates: start: 20071025, end: 20100601
  13. METHOTREXATE [Concomitant]
     Indication: PSORIATIC ARTHROPATHY
  14. NEURONTIN [Concomitant]
     Indication: PSORIATIC ARTHROPATHY
     Dosage: 600 QUID
  15. CYMBALTA [Concomitant]
     Indication: FIBROMYALGIA
  16. AMBIEN [Concomitant]
     Indication: INSOMNIA
  17. ENALAPRIL MALEATE [Concomitant]
     Indication: HYPERTENSION
  18. HYDROCHLOROTHIAZIDE [Concomitant]
     Indication: HYPERTENSION

REACTIONS (5)
  - MORTON'S NEUROMA [None]
  - WEIGHT DECREASED [None]
  - HEADACHE [None]
  - SINUS DISORDER [None]
  - DYSGEUSIA [None]
